FAERS Safety Report 8928712 (Version 1)
Quarter: 2012Q4

REPORT INFORMATION
  Report Type: Spontaneous
  Country: US (occurrence: None)
  Receive Date: 20121126
  Receipt Date: 20121126
  Transmission Date: 20130627
  Serious: Yes (Hospitalization)
  Sender: FDA-Public Use
  Company Number: None

PATIENT
  Age: 24 Year
  Sex: Female

DRUGS (1)
  1. RIFAMPIN [Suspect]
     Dosage: 600  mg   daily   po
     Route: 048
     Dates: start: 20120924, end: 20120924

REACTIONS (8)
  - Contusion [None]
  - Petechiae [None]
  - Ocular hyperaemia [None]
  - Gingival bleeding [None]
  - Epistaxis [None]
  - Vaginal haemorrhage [None]
  - Blood urine present [None]
  - Haematochezia [None]
